FAERS Safety Report 13026262 (Version 1)
Quarter: 2016Q4

REPORT INFORMATION
  Report Type: Spontaneous
  Country: NO (occurrence: NO)
  Receive Date: 20161214
  Receipt Date: 20161214
  Transmission Date: 20170207
  Serious: Yes (Other)
  Sender: FDA-Public Use
  Company Number: NO-ROCHE-1867328

PATIENT
  Age: 35 Year
  Sex: Female

DRUGS (2)
  1. SOBRIL [Concomitant]
     Active Substance: OXAZEPAM
  2. RIVOTRIL [Suspect]
     Active Substance: CLONAZEPAM
     Indication: PRODUCT USED FOR UNKNOWN INDICATION
     Route: 065

REACTIONS (2)
  - Withdrawal syndrome [Unknown]
  - Intentional self-injury [Unknown]
